FAERS Safety Report 20333547 (Version 2)
Quarter: 2022Q1

REPORT INFORMATION
  Report Type: Spontaneous
  Country: US (occurrence: US)
  Receive Date: 20220113
  Receipt Date: 20220301
  Transmission Date: 20220423
  Serious: No
  Sender: FDA-Public Use
  Company Number: US-MYLANLABS-2021M1090417

PATIENT
  Sex: Female
  Weight: 82.55 kg

DRUGS (1)
  1. ESTRADIOL TRANSDERMAL SYSTEM [Suspect]
     Active Substance: ESTRADIOL
     Indication: Menopausal symptoms
     Dosage: UNK UNK, QD (PATCHES 2X A WEEK)
     Route: 062
     Dates: start: 2020, end: 2020

REACTIONS (5)
  - Pruritus [Unknown]
  - Rash [Unknown]
  - Application site pruritus [Unknown]
  - Application site erythema [Unknown]
  - Application site hypersensitivity [Unknown]
